FAERS Safety Report 12119670 (Version 2)
Quarter: 2016Q1

REPORT INFORMATION
  Report Type: Spontaneous
  Country: AU (occurrence: AU)
  Receive Date: 20160226
  Receipt Date: 20160324
  Transmission Date: 20160526
  Serious: Yes (Hospitalization, Other)
  Sender: FDA-Public Use
  Company Number: AU-SA-2016SA032896

PATIENT
  Age: 37 Year
  Sex: Female
  Weight: 71 kg

DRUGS (8)
  1. AZITHROMYCIN ANHYDROUS. [Suspect]
     Active Substance: AZITHROMYCIN ANHYDROUS
     Dosage: 3 DOSES TOTAL
     Route: 042
     Dates: start: 20151106, end: 20151109
  2. TAZOBACTAM/PIPERACILLIN [Suspect]
     Active Substance: PIPERACILLIN SODIUM\TAZOBACTAM SODIUM
     Dosage: TOTAL 8 DOSES
     Route: 042
     Dates: start: 20151105, end: 20151109
  3. VANCOMYCIN HYDROCHLORIDE. [Suspect]
     Active Substance: VANCOMYCIN HYDROCHLORIDE
     Dosage: 3 DOSES TOTAL
     Route: 042
     Dates: start: 20151107, end: 20151108
  4. LAMIVUDINE. [Concomitant]
     Active Substance: LAMIVUDINE
     Indication: PROPHYLAXIS
     Route: 065
     Dates: end: 20151109
  5. PULMICORT TURBUHALER [Concomitant]
     Active Substance: BUDESONIDE
     Dosage: 2 PUFFS MANE DOSE DOSE:2 PUFF(S)
     Route: 065
  6. LAMIVUDINE. [Concomitant]
     Active Substance: LAMIVUDINE
     Indication: PROPHYLAXIS
     Dosage: 25 MG NOCTE
     Route: 065
     Dates: start: 20151109
  7. CLEXANE [Suspect]
     Active Substance: ENOXAPARIN SODIUM
     Dosage: 2 DOSES INCLUSIVE.
     Route: 042
     Dates: start: 20151105, end: 20151108
  8. CEFTRIAXONE. [Suspect]
     Active Substance: CEFTRIAXONE
     Dosage: DOSE: 2 DOSES
     Route: 042
     Dates: start: 20151105, end: 20151106

REACTIONS (1)
  - Acute kidney injury [Recovering/Resolving]

NARRATIVE: CASE EVENT DATE: 20151109
